FAERS Safety Report 6901134-X (Version None)
Quarter: 2010Q3

REPORT INFORMATION
  Report Type: 
  Country: None (occurrence: None)
  Receive Date: 20100708
  Receipt Date: 20090914
  Transmission Date: 20110219
  Serious: Yes (Other)
  Sender: FDA-Public Use
  Company Number: 2009251794

PATIENT
  Age: 49 Year
  Sex: Female
  Weight: 108.8 kg

DRUGS (6)
  1. CHANTIX [Suspect]
     Indication: SMOKING CESSATION THERAPY
     Dosage: 0.5 MG, 1X/DAY
     Dates: start: 20090801, end: 20090805
  2. GLIPIZIDE (GLIPIZIDE) [Concomitant]
  3. METFORMIN HCL [Concomitant]
  4. INSULIN (INSULIN) [Concomitant]
  5. NEURONTIN [Concomitant]
  6. MIRAPEX [Concomitant]

REACTIONS (7)
  - BLOOD PRESSURE INCREASED [None]
  - DIABETES MELLITUS [None]
  - MIGRAINE [None]
  - MULTIPLE SCLEROSIS [None]
  - PALPITATIONS [None]
  - RESTLESS LEGS SYNDROME [None]
  - VISION BLURRED [None]
